FAERS Safety Report 20548731 (Version 2)
Quarter: 2022Q1

REPORT INFORMATION
  Report Type: Spontaneous
  Country: CA (occurrence: CA)
  Receive Date: 20220303
  Receipt Date: 20220309
  Transmission Date: 20220423
  Serious: Yes (Other)
  Sender: FDA-Public Use
  Company Number: CA-SUNOVION-2022SUN000689

PATIENT
  Sex: Male

DRUGS (7)
  1. KYNMOBI [Suspect]
     Active Substance: APOMORPHINE HYDROCHLORIDE
     Indication: Parkinson^s disease
     Dosage: 20 MG (4-5 STRIPS DAILY)
     Route: 060
  2. KYNMOBI [Suspect]
     Active Substance: APOMORPHINE HYDROCHLORIDE
     Dosage: 20 MG (FEWER STRIPS A DAY)
     Route: 060
  3. KYNMOBI [Suspect]
     Active Substance: APOMORPHINE HYDROCHLORIDE
     Dosage: 20 MG, QD
     Route: 060
     Dates: start: 20211203
  4. KYNMOBI [Suspect]
     Active Substance: APOMORPHINE HYDROCHLORIDE
     Dosage: 20 MG (2-3 PER WEEK)
     Route: 060
  5. DOMPERIDONE [Suspect]
     Active Substance: DOMPERIDONE
     Dosage: 10 MG
     Route: 065
  6. CARBIDOPA\LEVODOPA [Concomitant]
     Active Substance: CARBIDOPA\LEVODOPA
     Dosage: UNK
     Route: 065
  7. QUETIAPINE [Concomitant]
     Active Substance: QUETIAPINE
     Dosage: 25 MG
     Route: 065

REACTIONS (4)
  - Hallucination, auditory [Recovered/Resolved]
  - Hallucination, visual [Recovered/Resolved]
  - Illusion [Recovered/Resolved]
  - Nausea [Unknown]
